FAERS Safety Report 5578636-4 (Version None)
Quarter: 2008Q1

REPORT INFORMATION
  Report Type: 
  Country: None (occurrence: None)
  Receive Date: 20080102
  Receipt Date: 20071225
  Transmission Date: 20080703
  Serious: Yes (Hospitalization)
  Sender: FDA-Public Use
  Company Number: JP-JNJFOC-20070600973

PATIENT
  Sex: Male
  Weight: 63 kg

DRUGS (6)
  1. REMICADE [Suspect]
     Route: 042
  2. REMICADE [Suspect]
     Indication: BEHCET'S SYNDROME
     Route: 042
  3. METHOTREXATE [Concomitant]
     Route: 048
  4. NEORAL [Concomitant]
     Route: 048
  5. NEORAL [Concomitant]
     Route: 048
  6. NEORAL [Concomitant]
     Indication: BEHCET'S SYNDROME
     Route: 048

REACTIONS (1)
  - LYMPH NODE TUBERCULOSIS [None]
